FAERS Safety Report 7139533-6 (Version None)
Quarter: 2010Q4

REPORT INFORMATION
  Report Type: 
  Country: None (occurrence: None)
  Receive Date: 20101206
  Receipt Date: 20101123
  Transmission Date: 20110411
  Serious: Yes (Other)
  Sender: FDA-Public Use
  Company Number: US-RB-015598-10

PATIENT
  Age: 45 Year
  Sex: Female

DRUGS (1)
  1. SUBOXONE [Suspect]
     Indication: PRODUCT USED FOR UNKNOWN INDICATION
     Dosage: DOSAGE INFORMATION UNKNOWN
     Route: 065

REACTIONS (14)
  - ASTHENIA [None]
  - CONVULSION [None]
  - DEPRESSION [None]
  - DIZZINESS [None]
  - DYSPNOEA [None]
  - DYSSTASIA [None]
  - FATIGUE [None]
  - HEADACHE [None]
  - HYPOTENSION [None]
  - LIBIDO DECREASED [None]
  - MUSCLE TWITCHING [None]
  - NAUSEA [None]
  - TREMOR [None]
  - VOMITING [None]
